FAERS Safety Report 24805734 (Version 1)
Quarter: 2025Q1

REPORT INFORMATION
  Report Type: Spontaneous
  Country: US (occurrence: US)
  Receive Date: 20250103
  Receipt Date: 20250103
  Transmission Date: 20250408
  Serious: Yes (Other)
  Sender: PFIZER
  Company Number: US-PFIZER INC-PV202400170240

PATIENT
  Age: 71 Year
  Sex: Male

DRUGS (3)
  1. RIFABUTIN [Suspect]
     Active Substance: RIFABUTIN
  2. AZITHROMYCIN [Suspect]
     Active Substance: AZITHROMYCIN
  3. ETHAMBUTOL [Suspect]
     Active Substance: ETHAMBUTOL HYDROCHLORIDE

REACTIONS (1)
  - Myelosuppression [Unknown]
